FAERS Safety Report 16964350 (Version 1)
Quarter: 2019Q4

REPORT INFORMATION
  Report Type: Spontaneous
  Country: US (occurrence: US)
  Receive Date: 20191027
  Receipt Date: 20191027
  Transmission Date: 20200122
  Serious: No
  Sender: FDA-Public Use
  Company Number: US-ARBOR PHARMACEUTICALS, LLC-US-2019ARB001327

PATIENT
  Sex: Female

DRUGS (3)
  1. TRIPTODUR [Suspect]
     Active Substance: TRIPTORELIN
     Indication: THYMUS DISORDER
  2. TRIPTODUR [Suspect]
     Active Substance: TRIPTORELIN
     Indication: ENDOCRINE DISORDER
     Dosage: UNK, SINGLE, EVERY 24 WEEKS
     Route: 030
  3. TRIPTODUR [Suspect]
     Active Substance: TRIPTORELIN
     Indication: GENDER DYSPHORIA

REACTIONS (1)
  - Product prescribing issue [Unknown]
